FAERS Safety Report 7272467-5 (Version None)
Quarter: 2011Q1

REPORT INFORMATION
  Report Type: 
  Country: None (occurrence: None)
  Receive Date: 20110203
  Receipt Date: 20110120
  Transmission Date: 20110831
  Serious: Yes (Hospitalization)
  Sender: FDA-Public Use
  Company Number: DE-ROCHE-727918

PATIENT
  Sex: Female
  Weight: 81.8 kg

DRUGS (10)
  1. BEVACIZUMAB [Suspect]
     Route: 042
     Dates: end: 20100729
  2. KEVATRIL [Concomitant]
     Indication: ANTIEMETIC SUPPORTIVE CARE
     Route: 042
  3. DEXAMETHASONE [Concomitant]
     Indication: ANTIEMETIC SUPPORTIVE CARE
     Route: 042
  4. FOLINIC ACID [Concomitant]
     Route: 042
     Dates: end: 20100729
  5. VERGENTAN [Concomitant]
     Indication: ANTIEMETIC SUPPORTIVE CARE
     Route: 048
  6. VOMEX A [Concomitant]
     Indication: ANTIEMETIC SUPPORTIVE CARE
     Dosage: IF REQUIRED
     Route: 054
  7. BEVACIZUMAB [Suspect]
     Dosage: 3RD CYCLE
     Route: 042
     Dates: start: 20091008, end: 20100211
  8. 5-FU [Concomitant]
     Dosage: 3RD CYCLE
     Route: 042
     Dates: start: 20091008, end: 20100211
  9. FOLINIC ACID [Concomitant]
     Dosage: 3RD CYCLE
     Route: 042
     Dates: start: 20091008, end: 20100211
  10. 5-FU [Concomitant]
     Route: 042
     Dates: end: 20100729

REACTIONS (3)
  - DEHYDRATION [None]
  - CYSTITIS VIRAL [None]
  - GASTROENTERITIS [None]
